FAERS Safety Report 11102318 (Version 1)
Quarter: 2015Q2

REPORT INFORMATION
  Report Type: Spontaneous
  Country: US (occurrence: None)
  Receive Date: 20150507
  Receipt Date: 20150507
  Transmission Date: 20150821
  Serious: Yes (Other)
  Sender: FDA-Public Use
  Company Number: US-H14001-15-00674

PATIENT
  Age: 57 Year

DRUGS (5)
  1. CYTOXAN [Suspect]
     Active Substance: CYCLOPHOSPHAMIDE
     Indication: PLASMA CELL MYELOMA
     Dosage: 800 MG, DAYS 1, 2, 3, 4 EVERY CYCLE, INTRAVENOUS
     Route: 042
     Dates: start: 20110615, end: 20111215
  2. DECADRON [Suspect]
     Active Substance: DEXAMETHASONE
     Indication: PLASMA CELL MYELOMA
     Dosage: 40 MG; DAYS 1,2,3,4 EVERY CYCLE, ORAL
     Route: 048
     Dates: start: 20110615, end: 20111215
  3. CISPLATIN (CISPLATIN) (UNKNOWN) (CISPLATIN) [Suspect]
     Active Substance: CISPLATIN
     Indication: PLASMA CELL MYELOMA
     Dosage: 20 MG, DAYS 1, 2, 3, 4 EVERY CYCLE, INTRAVENOUS
     Route: 042
     Dates: start: 20110615, end: 20111215
  4. ADRIAMYCIN [Suspect]
     Active Substance: DOXORUBICIN HYDROCHLORIDE
     Indication: PLASMA CELL MYELOMA
     Dosage: 20 MG, DAYS 1, 2, 3, 4 EVERY CYCLE, INTRAVENOUS
     Route: 042
     Dates: start: 20110615, end: 20111215
  5. ETOPOSIDE (ETOPOSIDE) (UNKNOWN) (ETOPOSIDE) [Suspect]
     Active Substance: ETOPOSIDE
     Indication: PLASMA CELL MYELOMA
     Dosage: 80 MG, DAYS 1, 2, 3, 4 EVERY CYCLE, INTRAVENOUS
     Route: 042
     Dates: start: 20110615, end: 20111215

REACTIONS (1)
  - Appendicitis [None]

NARRATIVE: CASE EVENT DATE: 20110706
